FAERS Safety Report 4446240-7 (Version None)
Quarter: 2004Q3

REPORT INFORMATION
  Report Type: 
  Country: None (occurrence: None)
  Receive Date: 20040907
  Receipt Date: 20040820
  Transmission Date: 20050211
  Serious: Yes (Death)
  Sender: FDA-Public Use
  Company Number: 04P-163-0271140-00

PATIENT
  Sex: Female

DRUGS (1)
  1. DILAUDID [Suspect]
     Dosage: 2 MG, 1 IN 1 D, INTRAMUSCULAR
     Route: 030

REACTIONS (1)
  - CARDIAC ARREST [None]
